FAERS Safety Report 9614427 (Version 1)
Quarter: 2013Q4

REPORT INFORMATION
  Report Type: Spontaneous
  Country: US (occurrence: US)
  Receive Date: 20131011
  Receipt Date: 20131011
  Transmission Date: 20140711
  Serious: No
  Sender: FDA-Public Use
  Company Number: US-009507513-1310USA004490

PATIENT
  Sex: 0

DRUGS (1)
  1. PROVENTIL [Suspect]
     Dosage: INHALATION AEROSOL HFA
     Route: 055

REACTIONS (3)
  - Expired drug administered [Unknown]
  - Product packaging quantity issue [Unknown]
  - No adverse event [Unknown]
